FAERS Safety Report 25485146 (Version 1)
Quarter: 2025Q2

REPORT INFORMATION
  Report Type: Spontaneous
  Country: CN (occurrence: CN)
  Receive Date: 20250626
  Receipt Date: 20250626
  Transmission Date: 20250716
  Serious: Yes (Hospitalization)
  Sender: ELI LILLY AND COMPANY
  Company Number: CN-ELI_LILLY_AND_COMPANY-CN202506020154

PATIENT
  Age: 80 Year
  Sex: Female
  Weight: 50 kg

DRUGS (3)
  1. HUMALOG MIX75/25 [Suspect]
     Active Substance: INSULIN LISPRO
     Indication: Type 2 diabetes mellitus
     Dosage: 24 INTERNATIONAL UNIT, BID
     Route: 058
     Dates: start: 20250609, end: 20250617
  2. METFORMIN [Suspect]
     Active Substance: METFORMIN HYDROCHLORIDE
     Indication: Type 2 diabetes mellitus
     Dosage: UNK UNK, DAILY
     Route: 048
     Dates: start: 20250609, end: 20250617
  3. EMPAGLIFLOZIN [Suspect]
     Active Substance: EMPAGLIFLOZIN
     Indication: Type 2 diabetes mellitus
     Dosage: UNK UNK, DAILY
     Route: 048
     Dates: start: 20250609, end: 20250617

REACTIONS (4)
  - Oxygen saturation decreased [Recovering/Resolving]
  - Syncope [Recovering/Resolving]
  - Loss of consciousness [Recovering/Resolving]
  - Hypoglycaemia [Recovering/Resolving]

NARRATIVE: CASE EVENT DATE: 20250617
